FAERS Safety Report 5792339-2 (Version None)
Quarter: 2008Q2

REPORT INFORMATION
  Report Type: 
  Country: None (occurrence: None)
  Receive Date: 20080623
  Receipt Date: 20080612
  Transmission Date: 20081010
  Serious: Yes (Death, Hospitalization)
  Sender: FDA-Public Use
  Company Number: 19442

PATIENT
  Age: 11 Year
  Sex: Male

DRUGS (8)
  1. METHOTREXATE [Suspect]
     Indication: ACUTE LYMPHOCYTIC LEUKAEMIA
  2. VINCRISTINE [Suspect]
     Indication: ACUTE LYMPHOCYTIC LEUKAEMIA
  3. DOXORUBICIN HCL [Suspect]
     Indication: ACUTE LYMPHOCYTIC LEUKAEMIA
  4. ASPARAGINASE [Suspect]
     Indication: ACUTE LYMPHOCYTIC LEUKAEMIA
  5. PREDNISONE 50MG TAB [Suspect]
     Indication: ACUTE LYMPHOCYTIC LEUKAEMIA
  6. TICARCILLIN-CLAVILANATE [Concomitant]
  7. TOBRAMYCIN [Concomitant]
  8. VANCOMYCIN [Concomitant]

REACTIONS (26)
  - ABSCESS FUNGAL [None]
  - ABSCESS INTESTINAL [None]
  - ALANINE AMINOTRANSFERASE INCREASED [None]
  - ASPARTATE AMINOTRANSFERASE INCREASED [None]
  - ATELECTASIS [None]
  - BIOPSY LIVER ABNORMAL [None]
  - BLOOD CULTURE POSITIVE [None]
  - CATHETER SITE INFECTION [None]
  - DIFFUSE ALVEOLAR DAMAGE [None]
  - FUNGAL INFECTION [None]
  - FUNGUS URINE TEST POSITIVE [None]
  - GENERAL PHYSICAL HEALTH DETERIORATION [None]
  - HEPATOSPLENOMEGALY [None]
  - HYPOXIA [None]
  - LIVER ABSCESS [None]
  - LUNG INFILTRATION [None]
  - MUCOSAL INFLAMMATION [None]
  - MULTI-ORGAN FAILURE [None]
  - NEUTROPENIA [None]
  - PULMONARY HAEMORRHAGE [None]
  - PYREXIA [None]
  - RENAL ABSCESS [None]
  - RESPIRATORY DISTRESS [None]
  - SPLENIC ABSCESS [None]
  - STREPTOCOCCAL INFECTION [None]
  - TRICHOSPORON INFECTION [None]
